FAERS Safety Report 5079527-8 (Version None)
Quarter: 2006Q3

REPORT INFORMATION
  Report Type: 
  Country: None (occurrence: None)
  Receive Date: 20060808
  Receipt Date: 20060725
  Transmission Date: 20061208
  Serious: Yes (Hospitalization, Other)
  Sender: FDA-Public Use
  Company Number: US200607002703

PATIENT
  Age: 79 Year
  Sex: Female

DRUGS (14)
  1. FORTEO [Suspect]
     Indication: OSTEOPOROSIS
     Dosage: SEE IMAGE
     Dates: start: 20051201
  2. FORTEO [Suspect]
  3. FORTEO PEN (FORTEO PEN) PEN DISPOSABLE [Concomitant]
  4. FENTANYL [Concomitant]
  5. INSULIN [Concomitant]
  6. STARLIX [Concomitant]
  7. AVANDIA [Concomitant]
  8. LOTENSIN [Concomitant]
  9. CALCIUM WITH VITAMIN D (CALCIUM PHOSPHATE, CALCIUM SODIUM LACTATE, ERG [Concomitant]
  10. CLONIDINE [Concomitant]
  11. MULTIVITAMINS (ASCORBIC ACID, ERGOCALIFEROL, FOLIC ACID, NICOTINAMIDE, [Concomitant]
  12. ZOCOR [Concomitant]
  13. COUMADIN (WARFARI SODIUM) [Concomitant]
  14. LASIX [Concomitant]

REACTIONS (15)
  - AORTIC STENOSIS [None]
  - ATRIAL FIBRILLATION [None]
  - CARDIAC FAILURE CONGESTIVE [None]
  - CARDIOMYOPATHY [None]
  - DEHYDRATION [None]
  - HYPERTENSION [None]
  - HYPOPROTHROMBINAEMIA [None]
  - MITRAL VALVE INCOMPETENCE [None]
  - NERVOUSNESS [None]
  - ORAL INTAKE REDUCED [None]
  - ORTHOSTATIC INTOLERANCE [None]
  - PHARMACEUTICAL PRODUCT COMPLAINT [None]
  - RENAL FAILURE ACUTE [None]
  - SICK SINUS SYNDROME [None]
  - WEIGHT DECREASED [None]
